FAERS Safety Report 19703516 (Version 2)
Quarter: 2022Q3

REPORT INFORMATION
  Report Type: Report from Study
  Country: CA (occurrence: CA)
  Receive Date: 20210816
  Receipt Date: 20220916
  Transmission Date: 20221027
  Serious: Yes (Other)
  Sender: FDA-Public Use
  Company Number: CA-BAUSCH-BL-2021-027664

PATIENT
  Age: 70 Year
  Sex: Male

DRUGS (32)
  1. DEXAMETHASONE [Suspect]
     Active Substance: DEXAMETHASONE
     Indication: Plasma cell myeloma
     Dosage: NOT SPECIFIED
     Route: 065
  2. CYCLOPHOSPHAMIDE [Suspect]
     Active Substance: CYCLOPHOSPHAMIDE
     Indication: Plasma cell myeloma
     Dosage: NOT SPECIFIED
     Route: 065
  3. IXAZOMIB [Suspect]
     Active Substance: IXAZOMIB
     Indication: Plasma cell myeloma
     Route: 048
  4. IXAZOMIB [Suspect]
     Active Substance: IXAZOMIB
     Route: 048
  5. HYDROMORPHONE [Concomitant]
     Active Substance: HYDROMORPHONE
     Indication: Pain
     Route: 048
  6. ACYCLOVIR [Concomitant]
     Active Substance: ACYCLOVIR
     Indication: Antiviral prophylaxis
     Dosage: ACYCLOVIR
     Route: 048
  7. ACYCLOVIR [Concomitant]
     Active Substance: ACYCLOVIR
     Indication: Premedication
  8. ASPIRIN [Concomitant]
     Active Substance: ASPIRIN
     Indication: Product used for unknown indication
     Dosage: ASPIRIN
     Route: 048
  9. BISOPROLOL [Concomitant]
     Active Substance: BISOPROLOL
     Indication: Product used for unknown indication
     Route: 048
  10. LACTULOSE [Concomitant]
     Active Substance: LACTULOSE
     Indication: Product used for unknown indication
     Route: 048
  11. EDOXABAN TOSYLATE [Concomitant]
     Active Substance: EDOXABAN TOSYLATE
     Indication: Thrombosis
     Route: 065
  12. MAGNESIUM [Concomitant]
     Active Substance: MAGNESIUM
     Indication: Product used for unknown indication
     Route: 048
  13. METHYLPHENIDATE [Concomitant]
     Active Substance: METHYLPHENIDATE
     Indication: Product used for unknown indication
     Route: 048
  14. METOCLOPRAMIDE [Concomitant]
     Active Substance: METOCLOPRAMIDE
     Indication: Hiccups
  15. MIRTAZAPINE [Concomitant]
     Active Substance: MIRTAZAPINE
     Indication: Depression
     Route: 048
  16. MIRTAZAPINE [Concomitant]
     Active Substance: MIRTAZAPINE
     Route: 065
  17. MIRTAZAPINE [Concomitant]
     Active Substance: MIRTAZAPINE
     Route: 048
  18. ONDANSETRON [Concomitant]
     Active Substance: ONDANSETRON
     Indication: Product used for unknown indication
  19. PAMIDRONATE DISODIUM [Concomitant]
     Active Substance: PAMIDRONATE DISODIUM
     Indication: Hypercalcaemia
  20. PANTOPRAZOLE [Concomitant]
     Active Substance: PANTOPRAZOLE
     Indication: Prophylaxis against gastrointestinal ulcer
     Route: 048
  21. RAMIPRIL [Concomitant]
     Active Substance: RAMIPRIL
     Indication: Product used for unknown indication
  22. ROSUVASTATIN CALCIUM [Concomitant]
     Active Substance: ROSUVASTATIN CALCIUM
     Indication: Product used for unknown indication
     Route: 048
  23. TIMOLOL MALEATE\TRAVOPROST [Concomitant]
     Active Substance: TIMOLOL MALEATE\TRAVOPROST
     Indication: Product used for unknown indication
  24. VITAMIN B12 [Concomitant]
     Active Substance: CYANOCOBALAMIN
     Indication: Product used for unknown indication
     Dosage: VITAMIN B12
     Route: 048
  25. VITAMIN D NOS [Concomitant]
     Active Substance: VITAMIN D NOS
     Indication: Product used for unknown indication
     Route: 048
  26. ZOMETA [Concomitant]
     Active Substance: ZOLEDRONIC ACID
     Indication: Product used for unknown indication
     Dosage: ZOMETA
     Route: 042
  27. ZOMETA [Concomitant]
     Active Substance: ZOLEDRONIC ACID
     Route: 042
  28. CALCIUM [Concomitant]
     Active Substance: CALCIUM
     Indication: Product used for unknown indication
     Dosage: NOT SPECIFIED
  29. PROCHLORPERAZINE [Concomitant]
     Active Substance: PROCHLORPERAZINE
     Indication: Prophylaxis of nausea and vomiting
     Dosage: NOT SPECIFIED
  30. PROCHLORPERAZINE [Concomitant]
     Active Substance: PROCHLORPERAZINE
     Indication: Prophylaxis of nausea and vomiting
  31. XGEVA [Concomitant]
     Active Substance: DENOSUMAB
     Indication: Product used for unknown indication
     Dosage: XGEVA SINGLE-USE VIAL. FOR S.C. USE ONLY. PRESERVATIVE-FREE.
     Route: 058
  32. PERINDOPRIL [Concomitant]
     Active Substance: PERINDOPRIL
     Indication: Cardiac dysfunction

REACTIONS (10)
  - Neuropathy peripheral [Not Recovered/Not Resolved]
  - Limb injury [Not Recovered/Not Resolved]
  - Sleep apnoea syndrome [Not Recovered/Not Resolved]
  - Fatigue [Not Recovered/Not Resolved]
  - Osteoarthritis [Not Recovered/Not Resolved]
  - Pyogenic granuloma [Not Recovered/Not Resolved]
  - Somnolence [Not Recovered/Not Resolved]
  - Malaise [Not Recovered/Not Resolved]
  - Rash [Not Recovered/Not Resolved]
  - Off label use [Not Recovered/Not Resolved]
